FAERS Safety Report 5121718-1 (Version None)
Quarter: 2006Q4

REPORT INFORMATION
  Report Type: 
  Country: None (occurrence: None)
  Receive Date: 20061006
  Receipt Date: 20060908
  Transmission Date: 20070319
  Serious: Yes (Death, Hospitalization)
  Sender: FDA-Public Use
  Company Number: IT-AVENTIS-200619333GDDC

PATIENT
  Age: 51 Year
  Sex: Female

DRUGS (5)
  1. DOCETAXEL [Suspect]
     Indication: BREAST CANCER RECURRENT
     Route: 042
     Dates: start: 20060504, end: 20060820
  2. BEVACIZUMAB [Suspect]
     Indication: BREAST CANCER RECURRENT
     Dosage: DOSE: UNK
     Route: 042
     Dates: start: 20060504, end: 20060820
  3. FENTANYL [Concomitant]
     Dates: start: 20060714, end: 20060820
  4. DARBEPOETIN ALFA [Concomitant]
     Dates: start: 20060417, end: 20060820
  5. PREDNISONE TAB [Concomitant]
     Dates: start: 20060503, end: 20060818

REACTIONS (2)
  - ABDOMINAL PAIN [None]
  - PULMONARY EMBOLISM [None]
